FAERS Safety Report 7395902-0 (Version None)
Quarter: 2011Q2

REPORT INFORMATION
  Report Type: 
  Country: None (occurrence: None)
  Receive Date: 20110406
  Receipt Date: 20110324
  Transmission Date: 20111010
  Serious: Yes (Hospitalization, Other)
  Sender: FDA-Public Use
  Company Number: US-BIOGENIDEC-2011BI007108

PATIENT
  Age: 39 Year
  Sex: Female

DRUGS (11)
  1. PERCOCET [Concomitant]
     Indication: PAIN
  2. TRILEPTAL [Concomitant]
     Indication: NEURALGIA
     Route: 048
  3. TYSABRI [Suspect]
     Indication: MULTIPLE SCLEROSIS
     Route: 042
     Dates: start: 20100322, end: 20110103
  4. TRAZODONE HCL [Concomitant]
     Indication: SLEEP DISORDER
  5. BACLOFEN [Concomitant]
  6. NUVIGIL [Concomitant]
     Indication: FATIGUE
  7. NEXIUM [Concomitant]
  8. VALIUM [Concomitant]
  9. CYMBALTA [Concomitant]
  10. DURAGESIC-100 [Concomitant]
     Indication: PAIN
  11. NEURONTIN [Concomitant]

REACTIONS (14)
  - AGITATION [None]
  - DIARRHOEA [None]
  - PROGRESSIVE MULTIFOCAL LEUKOENCEPHALOPATHY [None]
  - MASTOIDITIS [None]
  - COUGH [None]
  - DYSPNOEA [None]
  - RESPIRATORY FAILURE [None]
  - LUNG DISORDER [None]
  - OPPORTUNISTIC INFECTION [None]
  - VENTRICULAR TACHYCARDIA [None]
  - SUPRAVENTRICULAR TACHYCARDIA [None]
  - EAR INFECTION [None]
  - PYREXIA [None]
  - RESPIRATORY DISTRESS [None]
